FAERS Safety Report 24122472 (Version 1)
Quarter: 2024Q3

REPORT INFORMATION
  Report Type: Spontaneous
  Country: CN (occurrence: CN)
  Receive Date: 20240723
  Receipt Date: 20240723
  Transmission Date: 20241017
  Serious: Yes (Hospitalization)
  Sender: ELI LILLY AND CO
  Company Number: CN-Merck Healthcare KGaA-2024038007

PATIENT
  Age: 55 Year
  Sex: Male
  Weight: 70 kg

DRUGS (5)
  1. ERBITUX [Suspect]
     Active Substance: CETUXIMAB
     Indication: Tongue cancer metastatic
     Dosage: 900 MG, SINGLE
     Route: 041
     Dates: start: 20240628, end: 20240628
  2. CISPLATIN [Concomitant]
     Active Substance: CISPLATIN
     Indication: Tongue cancer metastatic
     Dosage: 40 MG, DAILY
     Route: 041
     Dates: start: 20240628, end: 20240628
  3. DOCETAXEL [Concomitant]
     Active Substance: DOCETAXEL\DOCETAXEL ANHYDROUS
     Indication: Tongue cancer metastatic
     Dosage: 120 MG, DAILY
     Route: 041
     Dates: start: 20240628, end: 20240628
  4. SODIUM CHLORIDE [Concomitant]
     Active Substance: SODIUM CHLORIDE
     Indication: Medication dilution
     Dosage: 300 ML, DAILY
     Route: 041
     Dates: start: 20240628, end: 20240628
  5. SODIUM CHLORIDE [Concomitant]
     Active Substance: SODIUM CHLORIDE
     Dosage: 250 ML, DAILY
     Route: 041
     Dates: start: 20240628, end: 20240628

REACTIONS (2)
  - Myelosuppression [Recovering/Resolving]
  - Mouth ulceration [Recovering/Resolving]

NARRATIVE: CASE EVENT DATE: 20240702
